FAERS Safety Report 9562183 (Version 1)
Quarter: 2013Q3

REPORT INFORMATION
  Report Type: Spontaneous
  Country: US (occurrence: US)
  Receive Date: 20130927
  Receipt Date: 20130927
  Transmission Date: 20140515
  Serious: No
  Sender: FDA-Public Use
  Company Number: US-BAYER-2013-117015

PATIENT
  Age: 57 Year
  Sex: Male
  Weight: 75 kg

DRUGS (2)
  1. ALEVE TABLET [Suspect]
     Dosage: DF
     Route: 048
  2. DILTIAZEM [Concomitant]

REACTIONS (5)
  - Burning sensation [Not Recovered/Not Resolved]
  - Pruritus generalised [Recovered/Resolved]
  - Hyperhidrosis [Recovered/Resolved]
  - Upper respiratory tract congestion [Recovered/Resolved]
  - Nausea [Recovered/Resolved]
